FAERS Safety Report 21473711 (Version 3)
Quarter: 2022Q4

REPORT INFORMATION
  Report Type: Spontaneous
  Country: US (occurrence: US)
  Receive Date: 20221018
  Receipt Date: 20221027
  Transmission Date: 20230112
  Serious: No
  Sender: FDA-Public Use
  Company Number: US-Santen Inc-2022-USA-005908

PATIENT
  Sex: Male

DRUGS (1)
  1. NATACYN [Suspect]
     Active Substance: NATAMYCIN
     Indication: Product used for unknown indication
     Dosage: Q2H
     Route: 047
     Dates: start: 202209

REACTIONS (5)
  - Foreign body sensation in eyes [Not Recovered/Not Resolved]
  - Eye irritation [Not Recovered/Not Resolved]
  - Eye pain [Not Recovered/Not Resolved]
  - Liquid product physical issue [Unknown]
  - Product deposit [Unknown]

NARRATIVE: CASE EVENT DATE: 20220901
